FAERS Safety Report 9592497 (Version 3)
Quarter: 2013Q4

REPORT INFORMATION
  Report Type: Spontaneous
  Country: US (occurrence: US)
  Receive Date: 20131004
  Receipt Date: 20131203
  Transmission Date: 20140711
  Serious: Yes (Hospitalization, Other)
  Sender: FDA-Public Use
  Company Number: US-JNJFOC-20130916723

PATIENT
  Sex: Male
  Weight: 117.03 kg

DRUGS (15)
  1. REMICADE [Suspect]
     Indication: PSORIATIC ARTHROPATHY
     Route: 042
  2. ELIQUIS [Suspect]
     Indication: THROMBOSIS
     Route: 065
     Dates: start: 201212
  3. ELIQUIS [Suspect]
     Indication: THROMBOSIS
     Route: 065
     Dates: start: 2013, end: 2013
  4. LOVENOX [Suspect]
     Indication: PRODUCT USED FOR UNKNOWN INDICATION
     Route: 065
  5. LOVENOX [Suspect]
     Indication: PRODUCT USED FOR UNKNOWN INDICATION
     Route: 065
     Dates: start: 201305
  6. ENALAPRIL [Concomitant]
     Route: 065
  7. LIPITOR [Concomitant]
     Route: 065
  8. VERAPAMIL [Concomitant]
     Route: 065
  9. CALCIUM [Concomitant]
     Route: 065
  10. PREVACID [Concomitant]
     Route: 065
  11. ALBUTEROL [Concomitant]
     Dosage: AS NECESSARY
     Route: 065
  12. LASIX [Concomitant]
     Route: 065
  13. QVAR [Concomitant]
     Route: 065
  14. TYLENOL 3 [Concomitant]
     Dosage: AT NIGHT
     Route: 065
  15. AMBIEN [Concomitant]
     Dosage: ON ACCASION BUT NOT SO MUCH
     Route: 065

REACTIONS (7)
  - Deep vein thrombosis [Unknown]
  - Gastrointestinal ulcer haemorrhage [Unknown]
  - Postoperative wound infection [Recovered/Resolved]
  - Coagulopathy [Unknown]
  - Blood cholesterol increased [Unknown]
  - Compartment syndrome [Unknown]
  - Fatigue [Unknown]
